FAERS Safety Report 19661674 (Version 18)
Quarter: 2025Q4

REPORT INFORMATION
  Report Type: Report from Study
  Country: US (occurrence: US)
  Receive Date: 20210805
  Receipt Date: 20251231
  Transmission Date: 20260117
  Serious: Yes (Hospitalization)
  Sender: PFIZER
  Company Number: US-PFIZER INC-202100969934

PATIENT
  Age: 55 Year
  Sex: Female
  Weight: 52.16 kg

DRUGS (6)
  1. PREMARIN [Suspect]
     Active Substance: ESTROGENS, CONJUGATED
     Indication: Vulvovaginal dryness
     Dosage: 3 MG, 1X/DAY
  2. PREMARIN [Suspect]
     Active Substance: ESTROGENS, CONJUGATED
     Indication: Vaginal discharge
     Dosage: 0.3 MG, 1X/DAY
     Dates: start: 2008
  3. PREMARIN [Suspect]
     Active Substance: ESTROGENS, CONJUGATED
     Indication: Hormone therapy
     Dosage: 0.45 MG, TAKING 2 ON ONE DAY LIKE 12 HOURS APART. 1 THE NEXT DAY AND THEN THE NEXT DAY TAKE 2
  4. PREMARIN [Suspect]
     Active Substance: ESTROGENS, CONJUGATED
     Indication: Hormone replacement therapy
     Dosage: TAKE A .3 EVERYDAY BUT EVERY OTHER DAY TAKE 2, .3 MG TABLETS AND THEN COME BACK IN A MONTH
  5. PREMARIN [Suspect]
     Active Substance: ESTROGENS, CONJUGATED
     Indication: Menopause
  6. VITAMIN B12 [Concomitant]
     Active Substance: CYANOCOBALAMIN
     Dosage: UNK
     Dates: start: 1990

REACTIONS (11)
  - Smear cervix abnormal [Unknown]
  - Human papilloma virus test positive [Unknown]
  - Off label use [Unknown]
  - Contraindicated product administered [Unknown]
  - Oropharyngeal discomfort [Recovered/Resolved]
  - Dysphonia [Recovered/Resolved]
  - Nasopharyngitis [Unknown]
  - Hormone level abnormal [Unknown]
  - Vaginal infection [Unknown]
  - Gait disturbance [Unknown]
  - Injury [Unknown]

NARRATIVE: CASE EVENT DATE: 20200101
